FAERS Safety Report 9131368 (Version 1)
Quarter: 2013Q1

REPORT INFORMATION
  Report Type: Report from Study
  Country: US (occurrence: US)
  Receive Date: 20130301
  Receipt Date: 20130301
  Transmission Date: 20140127
  Serious: No
  Sender: FDA-Public Use
  Company Number: US-MYLANLABS-2012S1002853

PATIENT
  Age: 16 Year
  Sex: Female
  Weight: 90 kg

DRUGS (3)
  1. AMNESTEEM CAPSULES [Suspect]
     Indication: ACNE
     Route: 048
     Dates: start: 20120103, end: 20120201
  2. AMOXICILLIN [Concomitant]
     Dates: start: 20111129
  3. DEXAMETHASONE [Concomitant]
     Dates: start: 20120103

REACTIONS (1)
  - Depressed mood [Recovering/Resolving]
